FAERS Safety Report 7553349-8 (Version None)
Quarter: 2011Q2

REPORT INFORMATION
  Report Type: 
  Country: None (occurrence: None)
  Receive Date: 20110617
  Receipt Date: 20110615
  Transmission Date: 20111010
  Serious: Yes (Other)
  Sender: FDA-Public Use
  Company Number: US-BRISTOL-MYERS SQUIBB COMPANY-15765910

PATIENT
  Age: 56 Year
  Sex: Female

DRUGS (7)
  1. LISINOPRIL [Concomitant]
  2. NORVASC [Concomitant]
  3. WARFARIN SODIUM [Suspect]
  4. PLAVIX [Suspect]
     Indication: EMBOLIC STROKE
  5. COUMADIN [Suspect]
     Indication: ATRIAL FIBRILLATION
     Dosage: DOSE REDUCEDD TO 1 MG TABS
  6. COREG [Concomitant]
  7. SYNTHROID [Concomitant]

REACTIONS (1)
  - EMBOLIC STROKE [None]
